FAERS Safety Report 8417202-X (Version None)
Quarter: 2012Q2

REPORT INFORMATION
  Report Type: 
  Country: None (occurrence: None)
  Receive Date: 20120606
  Receipt Date: 20120529
  Transmission Date: 20120825
  Serious: Yes (Death)
  Sender: FDA-Public Use
  Company Number: US-CELGENEUS-163-21880-12053443

PATIENT
  Sex: Female

DRUGS (2)
  1. CYTARABINE [Concomitant]
     Route: 065
     Dates: start: 20110101
  2. REVLIMID [Suspect]
     Indication: MYELODYSPLASTIC SYNDROME
     Dosage: 5 MILLIGRAM
     Route: 048
     Dates: start: 20110601, end: 20110801

REACTIONS (1)
  - ACUTE MYELOID LEUKAEMIA [None]
